FAERS Safety Report 6905488-X (Version None)
Quarter: 2010Q3

REPORT INFORMATION
  Report Type: 
  Country: None (occurrence: None)
  Receive Date: 20100804
  Receipt Date: 20100727
  Transmission Date: 20110219
  Serious: Yes (Hospitalization)
  Sender: FDA-Public Use
  Company Number: DE-ABBOTT-09P-062-0613533-00

PATIENT
  Sex: Female
  Weight: 65 kg

DRUGS (5)
  1. HUMIRA [Suspect]
     Indication: RHEUMATOID ARTHRITIS
     Route: 058
     Dates: start: 20080601, end: 20090101
  2. LEFLUNOMIDE [Suspect]
     Indication: RHEUMATOID ARTHRITIS
     Route: 048
  3. URBASON [Concomitant]
     Indication: RHEUMATOID ARTHRITIS
     Route: 048
  4. RITUXIMAB [Concomitant]
     Indication: RHEUMATOID ARTHRITIS
     Dates: start: 20070626, end: 20070626
  5. LEF20MG [Concomitant]
     Indication: RHEUMATOID ARTHRITIS
     Dates: start: 20070626

REACTIONS (3)
  - NASOPHARYNGITIS [None]
  - NORMOCHROMIC NORMOCYTIC ANAEMIA [None]
  - URINARY TRACT INFECTION [None]
